FAERS Safety Report 18539531 (Version 1)
Quarter: 2020Q4

REPORT INFORMATION
  Report Type: Spontaneous
  Country: US (occurrence: US)
  Receive Date: 20201123
  Receipt Date: 20201123
  Transmission Date: 20210114
  Serious: Yes (Hospitalization)
  Sender: FDA-Public Use
  Company Number: None

PATIENT
  Age: 57 Year
  Sex: Female

DRUGS (1)
  1. EPCLUSA [Suspect]
     Active Substance: SOFOSBUVIR\VELPATASVIR
     Route: 048
     Dates: start: 202009

REACTIONS (4)
  - Headache [None]
  - Nausea [None]
  - Haemoglobin decreased [None]
  - Fatigue [None]

NARRATIVE: CASE EVENT DATE: 20201015
